FAERS Safety Report 14091478 (Version 1)
Quarter: 2017Q4

REPORT INFORMATION
  Report Type: Spontaneous
  Country: FR (occurrence: FR)
  Receive Date: 20171016
  Receipt Date: 20171016
  Transmission Date: 20180321
  Serious: Yes (Other)
  Sender: FDA-Public Use
  Company Number: FR-009507513-1710FRA006046

PATIENT
  Age: 8 Month
  Sex: Female
  Weight: 8 kg

DRUGS (2)
  1. SINGULAIR [Suspect]
     Active Substance: MONTELUKAST SODIUM
     Indication: INFANTILE ASTHMA
     Dosage: 4 MG, QD
     Route: 048
     Dates: start: 20170222, end: 20170614
  2. SERETIDE [Concomitant]
     Active Substance: FLUTICASONE PROPIONATE\SALMETEROL XINAFOATE

REACTIONS (1)
  - Urticaria chronic [Recovered/Resolved]

NARRATIVE: CASE EVENT DATE: 201704
